FAERS Safety Report 6603388-6 (Version None)
Quarter: 2010Q1

REPORT INFORMATION
  Report Type: 
  Country: None (occurrence: None)
  Receive Date: 20100226
  Receipt Date: 20090323
  Transmission Date: 20100710
  Serious: No
  Sender: FDA-Public Use
  Company Number: A0774842A

PATIENT
  Age: 19 Year
  Sex: Female

DRUGS (3)
  1. VALTREX [Suspect]
     Indication: GENITAL HERPES
     Dosage: 500MG TWICE PER DAY
     Route: 048
     Dates: start: 20090317, end: 20090319
  2. ZOVIRAX [Concomitant]
  3. DIFLUCAN [Concomitant]

REACTIONS (1)
  - URTICARIA [None]
